FAERS Safety Report 21876055 (Version 1)
Quarter: 2023Q1

REPORT INFORMATION
  Report Type: Spontaneous
  Country: US (occurrence: US)
  Receive Date: 20230118
  Receipt Date: 20230118
  Transmission Date: 20230417
  Serious: No
  Sender: FDA-Public Use
  Company Number: US-GLAXOSMITHKLINE-USCH2023002483

PATIENT

DRUGS (2)
  1. GLYCERIN\SORBITOL [Suspect]
     Active Substance: GLYCERIN\SORBITOL
     Indication: Hyperaesthesia teeth
     Dosage: UNK
  2. GLYCERIN\SORBITOL [Suspect]
     Active Substance: GLYCERIN\SORBITOL
     Indication: Dental cleaning

REACTIONS (3)
  - Drug effect less than expected [Unknown]
  - Drug ineffective for unapproved indication [Unknown]
  - Product use in unapproved indication [Unknown]
